FAERS Safety Report 5340693-8 (Version None)
Quarter: 2007Q2

REPORT INFORMATION
  Report Type: 
  Country: None (occurrence: None)
  Receive Date: 20070531
  Receipt Date: 20070529
  Transmission Date: 20071010
  Serious: Yes (Hospitalization)
  Sender: FDA-Public Use
  Company Number: US-BOEHRINGER INGELHEIM PHARMACEUTICALS, INC.-2007-BP-07197BP

PATIENT
  Age: 5 Month
  Sex: Male

DRUGS (3)
  1. CATAPRES-TTS-1 [Suspect]
     Indication: CARDIAC NEOPLASM UNSPECIFIED
     Route: 061
  2. CATAPRES-TTS-1 [Suspect]
     Indication: HEART RATE INCREASED
  3. CATAPRES-TTS-1 [Suspect]
     Indication: BLOOD PRESSURE INCREASED

REACTIONS (1)
  - FAILURE TO THRIVE [None]
